FAERS Safety Report 7927014 (Version 3)
Quarter: 2013Q2

REPORT INFORMATION
  Report Type: Spontaneous
  Country: US (occurrence: US)
  Receive Date: 20110502
  Receipt Date: 20130605
  Transmission Date: 20140414
  Serious: No
  Sender: FDA-Public Use
  Company Number: US-ASTRAZENECA-2011SE03933

PATIENT
  Age: 75 Year
  Sex: Female

DRUGS (1)
  1. NEXIUM [Suspect]
     Route: 048

REACTIONS (5)
  - Diarrhoea [Unknown]
  - Nasopharyngitis [Unknown]
  - Adverse event [Unknown]
  - Abdominal pain upper [Unknown]
  - Drug dose omission [Unknown]
